FAERS Safety Report 4680087-1 (Version None)
Quarter: 2005Q2

REPORT INFORMATION
  Report Type: 
  Country: None (occurrence: None)
  Receive Date: 20050531
  Receipt Date: 20050517
  Transmission Date: 20051028
  Serious: Yes (Other)
  Sender: FDA-Public Use
  Company Number: 2005077567

PATIENT
  Sex: Female

DRUGS (1)
  1. CELEBREX [Suspect]
     Indication: ARTHRALGIA
     Dosage: ORAL
     Route: 048
     Dates: start: 20030101, end: 20030101

REACTIONS (5)
  - HYPERAEMIA [None]
  - PETECHIAE [None]
  - PRURITUS [None]
  - RASH [None]
  - SKIN EXFOLIATION [None]
